FAERS Safety Report 8071311 (Version 9)
Quarter: 2014Q3

REPORT INFORMATION
  Report Type: Report from Study
  Country: CZ (occurrence: CZ)
  Receive Date: 20110805
  Receipt Date: 20140724
  Transmission Date: 20150326
  Serious: Yes (Death, Hospitalization, Other)
  Sender: FDA-Public Use
  Company Number: CZ-CELGENEUS-217-21880-11071307

PATIENT
  Age: 78 Year
  Sex: Female
  Weight: 64 kg

DRUGS (24)
  1. LANSOPROL [Concomitant]
     Indication: PROPHYLAXIS AGAINST GASTROINTESTINAL ULCER
     Dosage: 15 MILLIGRAM
     Route: 048
     Dates: start: 20090617, end: 20110711
  2. XALATAN [Concomitant]
     Active Substance: LATANOPROST
     Indication: GLAUCOMA
     Dosage: 1 DROPS
     Route: 047
  3. REVLIMID [Suspect]
     Active Substance: LENALIDOMIDE
     Dosage: 25 MILLIGRAM
     Route: 048
     Dates: start: 20110516, end: 20110528
  4. FORTECORTIN [Suspect]
     Active Substance: DEXAMETHASONE
     Route: 048
     Dates: start: 20110516, end: 20110606
  5. FORTECORTIN [Suspect]
     Active Substance: DEXAMETHASONE
     Route: 048
     Dates: start: 20110627, end: 20110711
  6. BONDRONAT [Concomitant]
     Active Substance: IBANDRONIC ACID
     Indication: BONE DISORDER
     Dosage: 50 MILLIGRAM
     Route: 048
     Dates: start: 20091001, end: 20110711
  7. CALCIUM [Concomitant]
     Active Substance: CALCIUM
     Indication: OSTEOPOROSIS
     Dosage: 1000 MILLIGRAM
     Route: 048
     Dates: start: 200510
  8. MICARDIS PLUS 80 [Concomitant]
     Indication: HYPERTENSION
     Route: 048
  9. VITAMIN AD [Concomitant]
     Indication: OSTEOPOROSIS
     Dosage: 1 GUTTA
     Route: 048
     Dates: start: 200510
  10. FRAGMIN [Concomitant]
     Active Substance: DALTEPARIN SODIUM
     Indication: ANTICOAGULANT THERAPY
     Dosage: 5000 J
     Route: 058
     Dates: start: 20110509, end: 20110724
  11. REVLIMID [Suspect]
     Active Substance: LENALIDOMIDE
     Dosage: 15 MILLIGRAM
     Route: 048
     Dates: start: 20110627, end: 20110711
  12. NUTRIDRINK [Concomitant]
     Indication: DECREASED APPETITE
     Dosage: 200 MILLILITER
     Route: 048
     Dates: start: 20110711, end: 20110719
  13. AUGMENTIN [Concomitant]
     Active Substance: AMOXICILLIN\CLAVULANATE POTASSIUM
     Indication: FEBRILE NEUTROPENIA
     Dosage: 3.6 GRAM
     Route: 041
     Dates: start: 20110711, end: 20110712
  14. ZINNAT [Concomitant]
     Active Substance: CEFUROXIME AXETIL
     Indication: INFECTION
     Dosage: 1000 MILLIGRAM
     Route: 048
     Dates: start: 20110623, end: 20110627
  15. FORTECORTIN [Suspect]
     Active Substance: DEXAMETHASONE
     Indication: PLASMA CELL MYELOMA RECURRENT
     Route: 048
     Dates: start: 20110418, end: 20110509
  16. HERPESIN [Concomitant]
     Indication: ANTIVIRAL PROPHYLAXIS
     Dosage: 400 MILLIGRAM
     Route: 065
     Dates: start: 20110417, end: 20110711
  17. CIPROFLOXACIN. [Concomitant]
     Active Substance: CIPROFLOXACIN
     Indication: ANTIBIOTIC PROPHYLAXIS
     Dosage: 500 MILLIGRAM
     Route: 048
     Dates: start: 20110417, end: 20110711
  18. PALLADONE SR [Concomitant]
     Indication: BACK PAIN
     Dosage: 4 MILLIGRAM
     Route: 048
     Dates: start: 20101213
  19. TIMOLOL [Concomitant]
     Active Substance: TIMOLOL
     Indication: GLAUCOMA
     Dosage: 1 DROPS
     Route: 047
  20. REVLIMID [Suspect]
     Active Substance: LENALIDOMIDE
     Indication: PLASMA CELL MYELOMA RECURRENT
     Dosage: 25 MILLIGRAM
     Route: 048
     Dates: start: 20110418, end: 20110508
  21. ANOPYRIN [Concomitant]
     Active Substance: ASPIRIN
     Indication: ANTICOAGULANT THERAPY
     Dosage: 100 MILLIGRAM
     Route: 048
     Dates: start: 20110417
  22. AUGMENTIN [Concomitant]
     Active Substance: AMOXICILLIN\CLAVULANATE POTASSIUM
     Indication: MUCOSAL INFLAMMATION
     Route: 048
     Dates: start: 20110530, end: 20110612
  23. NEURONTIN [Concomitant]
     Active Substance: GABAPENTIN
     Indication: NEUROPATHY PERIPHERAL
     Dosage: 300 MILLIGRAM
     Route: 048
     Dates: start: 20101004, end: 20110505
  24. NUTRIDRINK [Concomitant]
     Indication: DECREASED APPETITE
     Route: 048
     Dates: start: 20110613

REACTIONS (3)
  - General physical health deterioration [Recovering/Resolving]
  - Gastrointestinal stromal tumour [Not Recovered/Not Resolved]
  - Cardiac failure [Fatal]

NARRATIVE: CASE EVENT DATE: 20110711
